FAERS Safety Report 5031181-7 (Version None)
Quarter: 2006Q2

REPORT INFORMATION
  Report Type: 
  Country: None (occurrence: None)
  Receive Date: 20060615
  Receipt Date: 20060530
  Transmission Date: 20061013
  Serious: Yes (Hospitalization)
  Sender: FDA-Public Use
  Company Number: 226152

PATIENT
  Age: 61 Year
  Sex: Male
  Weight: 57 kg

DRUGS (3)
  1. AVASTIN [Suspect]
     Indication: PERITONEAL CARCINOMA
     Dosage: 290 MG, INTRAVENOUS
     Route: 042
     Dates: end: 20060313
  2. VALSARTAN [Concomitant]
  3. TENORMIN [Concomitant]

REACTIONS (1)
  - BRADYCARDIA [None]
